FAERS Safety Report 7273798-5 (Version None)
Quarter: 2011Q1

REPORT INFORMATION
  Report Type: 
  Country: None (occurrence: None)
  Receive Date: 20110203
  Receipt Date: 20110126
  Transmission Date: 20110831
  Serious: Yes (Hospitalization, Other)
  Sender: FDA-Public Use
  Company Number: US-AMGEN-USASP2011005186

PATIENT
  Age: 52 Year
  Sex: Female

DRUGS (3)
  1. ANALGESIC                          /00161603/ [Concomitant]
  2. FENTANYL [Concomitant]
     Route: 062
  3. ENBREL [Suspect]
     Indication: RHEUMATOID ARTHRITIS
     Dates: start: 19980101, end: 20080101

REACTIONS (7)
  - SKIN FISSURES [None]
  - RHEUMATOID ARTHRITIS [None]
  - OVERDOSE [None]
  - PNEUMONIA [None]
  - UNRESPONSIVE TO STIMULI [None]
  - CONVULSION [None]
  - MULTIPLE SCLEROSIS [None]
